FAERS Safety Report 16712147 (Version 1)
Quarter: 2019Q3

REPORT INFORMATION
  Report Type: Spontaneous
  Country: ES (occurrence: ES)
  Receive Date: 20190816
  Receipt Date: 20190816
  Transmission Date: 20191004
  Serious: Yes (Hospitalization, Other)
  Sender: FDA-Public Use
  Company Number: ES-ABBVIE-19K-144-2887143-00

PATIENT
  Sex: Male

DRUGS (2)
  1. HUMIRA [Suspect]
     Active Substance: ADALIMUMAB
     Indication: CROHN^S DISEASE
     Route: 058
     Dates: start: 201809
  2. PREDNISONE. [Concomitant]
     Active Substance: PREDNISONE
     Indication: PRODUCT USED FOR UNKNOWN INDICATION

REACTIONS (18)
  - Large intestine perforation [Unknown]
  - Muscle atrophy [Unknown]
  - Dyschezia [Unknown]
  - Procedural pain [Unknown]
  - Drug ineffective [Unknown]
  - Disease susceptibility [Unknown]
  - Insomnia [Unknown]
  - Anaemia [Unknown]
  - Nightmare [Unknown]
  - Loss of consciousness [Recovered/Resolved]
  - Crohn^s disease [Not Recovered/Not Resolved]
  - Asthenia [Not Recovered/Not Resolved]
  - Nervousness [Unknown]
  - Abdominal mass [Recovering/Resolving]
  - Loss of consciousness [Unknown]
  - Fear [Unknown]
  - Depressed mood [Unknown]
  - Pain [Not Recovered/Not Resolved]

NARRATIVE: CASE EVENT DATE: 201811
